FAERS Safety Report 6445470-2 (Version None)
Quarter: 2009Q4

REPORT INFORMATION
  Report Type: 
  Country: None (occurrence: None)
  Receive Date: 20091110
  Receipt Date: 20090804
  Transmission Date: 20100525
  Serious: No
  Sender: FDA-Public Use
  Company Number: 1000007954

PATIENT
  Age: 56 Year
  Sex: Female

DRUGS (4)
  1. SAVELLA [Suspect]
     Indication: COMPLEX REGIONAL PAIN SYNDROME
     Dosage: 12.5 MG (12.5 MG, 1 IN 1 D), ORAL : 25 MG (12.5 MG, 2 IN 1 D), ORAL : 50 MG (25 MG, 2 IN 1 D), ORAL
     Route: 048
     Dates: start: 20090601, end: 20090601
  2. SAVELLA [Suspect]
     Indication: COMPLEX REGIONAL PAIN SYNDROME
     Dosage: 12.5 MG (12.5 MG, 1 IN 1 D), ORAL : 25 MG (12.5 MG, 2 IN 1 D), ORAL : 50 MG (25 MG, 2 IN 1 D), ORAL
     Route: 048
     Dates: start: 20090601
  3. THYROID TAB [Concomitant]
  4. VITAMINS [Concomitant]

REACTIONS (2)
  - BLOOD PRESSURE INCREASED [None]
  - HOT FLUSH [None]
